FAERS Safety Report 7498006-1 (Version None)
Quarter: 2011Q2

REPORT INFORMATION
  Report Type: 
  Country: None (occurrence: None)
  Receive Date: 20110524
  Receipt Date: 20110516
  Transmission Date: 20111010
  Serious: No
  Sender: FDA-Public Use
  Company Number: US-BIOGENIDEC-2011BI014446

PATIENT
  Age: 40 Year
  Sex: Female

DRUGS (2)
  1. TYSABRI [Suspect]
     Indication: MULTIPLE SCLEROSIS
     Route: 042
     Dates: start: 20100303
  2. CYMBALTA [Concomitant]
     Indication: ANXIETY

REACTIONS (4)
  - HERPES ZOSTER [None]
  - NECK PAIN [None]
  - HEMIPARESIS [None]
  - PAIN IN JAW [None]
